FAERS Safety Report 5349224-X (Version None)
Quarter: 2007Q2

REPORT INFORMATION
  Report Type: 
  Country: None (occurrence: None)
  Receive Date: 20070607
  Receipt Date: 20070528
  Transmission Date: 20071010
  Serious: Yes (Hospitalization)
  Sender: FDA-Public Use
  Company Number: PK-AVENTIS-200714956GDDC

PATIENT
  Age: 25 Year
  Sex: Female

DRUGS (4)
  1. FLAGYL [Suspect]
     Dosage: DOSE: 1 INFUSION
     Route: 042
     Dates: start: 20070524, end: 20070525
  2. AUGMENTIN                          /00756801/ [Concomitant]
     Route: 042
     Dates: start: 20070525
  3. AUGMENTIN                          /00756801/ [Concomitant]
     Dosage: DOSE: UNK
     Route: 048
  4. NUBAIN                             /00534802/ [Concomitant]
     Route: 042
     Dates: start: 20070525

REACTIONS (2)
  - CHILLS [None]
  - PYREXIA [None]
